FAERS Safety Report 8304906-2 (Version None)
Quarter: 2012Q2

REPORT INFORMATION
  Report Type: 
  Country: None (occurrence: None)
  Receive Date: 20120423
  Receipt Date: 20120412
  Transmission Date: 20120825
  Serious: Yes (Other)
  Sender: FDA-Public Use
  Company Number: US-UCBSA-055243

PATIENT
  Sex: Female

DRUGS (22)
  1. ACCURETIC [Concomitant]
     Dosage: 20-12.5 MG PER TABLET
     Route: 048
  2. CYANOCOBALAMIN [Concomitant]
     Route: 060
  3. VASOTEC [Concomitant]
     Dosage: 20 MG , WITH 1/2 HCTZ UNTIL YOUR ACCURECTIC COMES IN.
  4. JANUMET [Concomitant]
     Dosage: WITH MEALS, 50-1,000 MG
     Route: 048
  5. CYANOCOBALAMIN [Concomitant]
     Dosage: I SHOT WEEKLY FOR 4 WEEKS, 1,000 MCG/ML
  6. COUMADIN [Concomitant]
     Dosage: 5 MG , I TAB MONDAY, WEDNESDAY, D; 1.5 TAB ALL THE REST
  7. LORTAB [Suspect]
  8. CELEXA [Concomitant]
     Route: 048
  9. CYANOCOBALAMIN [Concomitant]
     Dosage: 1 SHOT MONTHLY, 1,000 MCG/ML
  10. POLY IRON [Concomitant]
     Indication: ANAEMIA
     Route: 048
  11. CRESTOR [Concomitant]
     Dosage: EVERY EVENING
     Route: 048
  12. CYANOCOBALAMIN [Concomitant]
     Dosage: 1,000 MCG/ML 1 SHOT DAILY FOR 4 DAYS
  13. LEVEMIR [Concomitant]
     Dosage: 100 UNIT/ML(3 ML) LNPN ,INJECT 10 UNITS INTO THE SKIN NIGHTLY.
  14. PRINZIDE,ZESTORETIC [Concomitant]
     Dosage: 20-25 MG , EVERY MORNING
     Route: 048
  15. GLUCOPHAGE [Concomitant]
     Dosage: WITH MEALS
     Route: 048
  16. JANUMET [Concomitant]
     Dosage: WITH MEALS, 50-1,000 MG
     Route: 048
  17. VITAMIN D [Concomitant]
     Dosage: 3,5000 UNIT TAB
     Route: 048
  18. ASCORBIC ACID [Concomitant]
  19. TOPROL-XL [Concomitant]
     Route: 048
  20. VICTOZA [Concomitant]
     Dosage: 0.6MG/0.1 ML (18 MG/3 ML) PNLJ
     Route: 023
  21. ACTOS [Concomitant]
     Route: 048
  22. HYDRODIURIL [Concomitant]
     Dosage: 25 MG ,TAKE 1/2 PILL DAILY WITH ENALAPRIL UNTIL YOUR ACCURETIC COMES IN

REACTIONS (5)
  - BLOOD CHOLESTEROL INCREASED [None]
  - TYPE 2 DIABETES MELLITUS [None]
  - HAEMORRHAGE INTRACRANIAL [None]
  - DRUG HYPERSENSITIVITY [None]
  - ESSENTIAL HYPERTENSION [None]
